FAERS Safety Report 10825568 (Version 1)
Quarter: 2015Q1

REPORT INFORMATION
  Report Type: Report from Study
  Country: US (occurrence: US)
  Receive Date: 20150219
  Receipt Date: 20150219
  Transmission Date: 20150721
  Serious: No
  Sender: FDA-Public Use
  Company Number: US-ABBVIE-14K-163-1317024-00

PATIENT
  Age: 42 Year
  Sex: Male

DRUGS (1)
  1. HUMIRA [Suspect]
     Active Substance: ADALIMUMAB
     Indication: PSORIASIS
     Route: 058
     Dates: start: 20141104

REACTIONS (7)
  - Sneezing [Recovered/Resolved]
  - Cough [Recovered/Resolved]
  - Influenza like illness [Recovered/Resolved]
  - Rhinorrhoea [Recovered/Resolved]
  - Pain in extremity [Recovered/Resolved]
  - Eye pain [Recovered/Resolved]
  - Increased upper airway secretion [Recovered/Resolved]

NARRATIVE: CASE EVENT DATE: 20141124
